FAERS Safety Report 16897698 (Version 6)
Quarter: 2020Q2

REPORT INFORMATION
  Report Type: Spontaneous
  Country: PT (occurrence: PT)
  Receive Date: 20191009
  Receipt Date: 20200508
  Transmission Date: 20200713
  Serious: Yes (Life-Threatening, Hospitalization, Disabling, Other)
  Sender: FDA-Public Use
  Company Number: PT-AUROBINDO-AUR-APL-2019-064788

PATIENT
  Age: 63 Year
  Sex: Female

DRUGS (3)
  1. GLICLAZIDE [Suspect]
     Active Substance: GLICLAZIDE
     Dosage: 80 MILLIGRAM, TWO TIMES A DAY
     Route: 065
  2. GLICLAZIDE [Suspect]
     Active Substance: GLICLAZIDE
     Indication: TYPE 2 DIABETES MELLITUS
     Dosage: 60 MILLIGRAM, ONCE A DAY
     Route: 048
  3. METFORMIN [Suspect]
     Active Substance: METFORMIN HYDROCHLORIDE
     Indication: TYPE 2 DIABETES MELLITUS
     Dosage: 2000 MILLIGRAM, ONCE A DAY
     Route: 048

REACTIONS (18)
  - Haemodynamic instability [Recovered/Resolved]
  - Condition aggravated [Unknown]
  - Fatigue [Unknown]
  - Hyperlactacidaemia [Recovered/Resolved]
  - Psychomotor hyperactivity [Recovered/Resolved]
  - Hyperkalaemia [Recovered/Resolved]
  - Diabetic ketoacidosis [Recovered/Resolved]
  - Acetonaemia [Unknown]
  - Metabolic acidosis [Recovering/Resolving]
  - Vomiting [Recovered/Resolved]
  - Acute kidney injury [Recovered/Resolved]
  - Respiratory failure [Recovered/Resolved]
  - Nausea [Recovered/Resolved]
  - Dry skin [Recovered/Resolved]
  - Diarrhoea [Recovered/Resolved]
  - Off label use [Unknown]
  - Mucosal dryness [Recovered/Resolved]
  - Lactic acidosis [Recovered/Resolved]
